FAERS Safety Report 19999605 (Version 1)
Quarter: 2021Q4

REPORT INFORMATION
  Report Type: Spontaneous
  Country: CN (occurrence: CN)
  Receive Date: 20211026
  Receipt Date: 20211026
  Transmission Date: 20220303
  Serious: Yes (Hospitalization)
  Sender: FDA-Public Use
  Company Number: 2021A775708

PATIENT
  Age: 70 Year
  Sex: Male
  Weight: 53 kg

DRUGS (3)
  1. IMFINZI [Suspect]
     Active Substance: DURVALUMAB
     Indication: Non-small cell lung cancer stage III
     Dosage: 500 MG/CYCLE - ONCE EVERY 21 DAYS
     Route: 042
     Dates: start: 20210426, end: 20210519
  2. IMFINZI [Suspect]
     Active Substance: DURVALUMAB
     Indication: Non-small cell lung cancer stage III
     Dosage: ONCE EVERY 20-30 DAYS
     Route: 042
  3. CATEQUENTINIB [Concomitant]
     Active Substance: CATEQUENTINIB
     Route: 048

REACTIONS (1)
  - Blister [Recovered/Resolved]
